FAERS Safety Report 14458117 (Version 2)
Quarter: 2018Q1

REPORT INFORMATION
  Report Type: Spontaneous
  Country: RU (occurrence: RU)
  Receive Date: 20180130
  Receipt Date: 20180216
  Transmission Date: 20180509
  Serious: Yes (Hospitalization)
  Sender: FDA-Public Use
  Company Number: RU-ABBVIE-18S-251-2239626-00

PATIENT
  Age: 46 Year
  Sex: Male

DRUGS (4)
  1. CARSIL [Suspect]
     Active Substance: DIETARY SUPPLEMENT\HERBALS\MILK THISTLE
     Indication: PRODUCT USED FOR UNKNOWN INDICATION
     Route: 048
  2. MAGNE-B6 [Suspect]
     Active Substance: MAGNESIUM LACTATE\PYRIDOXINE HYDROCHLORIDE
     Dosage: COATED TABLET
     Route: 048
  3. DEPAKINE CHRONO [Suspect]
     Active Substance: VALPROATE SODIUM
     Indication: PRODUCT USED FOR UNKNOWN INDICATION
     Route: 065
  4. MAGNE-B6 [Suspect]
     Active Substance: MAGNESIUM LACTATE\PYRIDOXINE HYDROCHLORIDE
     Indication: PRODUCT USED FOR UNKNOWN INDICATION
     Dosage: COATED TABLET
     Route: 048

REACTIONS (1)
  - Urticaria [Recovering/Resolving]

NARRATIVE: CASE EVENT DATE: 20171216
